FAERS Safety Report 18523949 (Version 1)
Quarter: 2020Q4

REPORT INFORMATION
  Report Type: Spontaneous
  Country: US (occurrence: US)
  Receive Date: 20201119
  Receipt Date: 20201119
  Transmission Date: 20210114
  Serious: Yes (Other)
  Sender: FDA-Public Use
  Company Number: US-TEVA-2020-US-1851541

PATIENT

DRUGS (1)
  1. NORTRIPTYLINE TEVA [Suspect]
     Active Substance: NORTRIPTYLINE
     Route: 065

REACTIONS (2)
  - Bipolar disorder [Unknown]
  - Mental disorder [Unknown]
